FAERS Safety Report 5357958-6 (Version None)
Quarter: 2007Q2

REPORT INFORMATION
  Report Type: 
  Country: None (occurrence: None)
  Receive Date: 20070612
  Receipt Date: 20070531
  Transmission Date: 20071010
  Serious: Yes (Hospitalization, Other)
  Sender: FDA-Public Use
  Company Number: 163-21880-07050061

PATIENT
  Age: 58 Year
  Sex: Male

DRUGS (15)
  1. REVLIMID [Suspect]
     Indication: MULTIPLE MYELOMA
     Dosage: 25 MG, QD X21 DAYS OF 28 DAYS, ORAL
     Route: 048
     Dates: start: 20061222, end: 20070314
  2. REVLIMID [Suspect]
     Dosage: 25 MG, Q HS X21 DAYS OF 28 DAYS, ORAL
     Route: 048
     Dates: start: 20070404
  3. OXYCONTIN [Concomitant]
  4. OXYCODONE HCL [Concomitant]
  5. PROTONIX [Concomitant]
  6. SENNA (SENNA) [Concomitant]
  7. ZOMETA [Concomitant]
  8. SOLU-MEDROL [Concomitant]
  9. COUMADIN [Concomitant]
  10. ARANESP [Concomitant]
  11. NEURONTIN [Concomitant]
  12. VALACYCLOVIR             (VALACICLOVIR) [Concomitant]
  13. FLUCONAZOLE [Concomitant]
  14. LYRICA [Concomitant]
  15. PACKED RED BLOOD CELL TRANSFUSION [Concomitant]

REACTIONS (11)
  - ANTICOAGULATION DRUG LEVEL BELOW THERAPEUTIC [None]
  - BACTERAEMIA [None]
  - DEEP VEIN THROMBOSIS [None]
  - EPISTAXIS [None]
  - HYPOXIA [None]
  - INFLUENZA [None]
  - OEDEMA PERIPHERAL [None]
  - PAIN IN EXTREMITY [None]
  - PLATELET COUNT DECREASED [None]
  - PNEUMONIA [None]
  - PULMONARY EMBOLISM [None]
